FAERS Safety Report 5126323-9 (Version None)
Quarter: 2006Q4

REPORT INFORMATION
  Report Type: 
  Country: None (occurrence: None)
  Receive Date: 20061010
  Receipt Date: 20060927
  Transmission Date: 20070319
  Serious: Yes (Other)
  Sender: FDA-Public Use
  Company Number: 2006096124

PATIENT
  Age: 62 Year
  Sex: Female

DRUGS (3)
  1. GEODON [Suspect]
     Indication: BIPOLAR DISORDER
     Dosage: 140MG (DAILY)
     Dates: start: 20060329, end: 20060101
  2. HALOPERIDOL DECANOATE [Suspect]
     Dosage: 100 MG (1 IN 1 M)
     Dates: start: 20060728
  3. ZYPREXA [Concomitant]

REACTIONS (6)
  - BACTERIA URINE [None]
  - CARBON DIOXIDE DECREASED [None]
  - ELECTROCARDIOGRAM QT CORRECTED INTERVAL PROLONGED [None]
  - NEUTROPHIL PERCENTAGE DECREASED [None]
  - SYNCOPE [None]
  - WHITE BLOOD CELLS URINE POSITIVE [None]
